FAERS Safety Report 4803416-4 (Version None)
Quarter: 2005Q4

REPORT INFORMATION
  Report Type: 
  Country: None (occurrence: None)
  Receive Date: 20051014
  Receipt Date: 20051007
  Transmission Date: 20060501
  Serious: Yes (Disabling)
  Sender: FDA-Public Use
  Company Number: GBWYE017229SEP05

PATIENT
  Age: 55 Year
  Sex: Male

DRUGS (1)
  1. EFFEXOR XR [Suspect]
     Dosage: 150 MG, ORAL
     Route: 048
     Dates: start: 20010101

REACTIONS (2)
  - PARKINSON'S DISEASE [None]
  - TREMOR [None]
